FAERS Safety Report 8841687 (Version 2)
Quarter: 2012Q4

REPORT INFORMATION
  Report Type: 
  Country: US (occurrence: US)
  Receive Date: 20121015
  Receipt Date: 20121106
  Transmission Date: 20130627
  Serious: Yes (Other)
  Sender: FDA-Public Use
  Company Number: US-CELGENEUS-163-21880-12100876

PATIENT
  Age: 69 Year
  Sex: Female
  Weight: 59.47 kg

DRUGS (15)
  1. REVLIMID [Suspect]
     Indication: MULTIPLE MYELOMA
     Dosage: 10 Milligram
     Route: 048
     Dates: start: 20110120
  2. ASPIRIN [Concomitant]
     Indication: DRUG USE FOR UNKNOWN INDICATION
     Route: 065
  3. OSCAL [Concomitant]
     Indication: DRUG USE FOR UNKNOWN INDICATION
     Route: 065
  4. LISINOPRIL [Concomitant]
     Indication: HYPERTENSION
     Dosage: 5 Milligram
     Route: 065
  5. FERREX [Concomitant]
     Indication: DRUG USE FOR UNKNOWN INDICATION
     Route: 065
  6. METFORMIN [Concomitant]
     Indication: DIABETES MELLITUS
     Dosage: 2 Gram
     Route: 065
  7. FISH OIL [Concomitant]
     Indication: DRUG USE FOR UNKNOWN INDICATION
     Route: 065
  8. ATENOLOL [Concomitant]
     Indication: HYPERTENSION
     Dosage: 25 Milligram
     Route: 065
  9. MVI [Concomitant]
     Indication: DRUG USE FOR UNKNOWN INDICATION
     Route: 065
  10. VITAMIN C [Concomitant]
     Indication: DRUG USE FOR UNKNOWN INDICATION
     Route: 065
  11. VITAMIN D [Concomitant]
     Indication: DRUG USE FOR UNKNOWN INDICATION
     Route: 065
  12. ATIVAN [Concomitant]
     Indication: ANXIETY
     Route: 065
  13. IMODIUM [Concomitant]
     Indication: DRUG USE FOR UNKNOWN INDICATION
     Route: 065
  14. INDAPAMIDE [Concomitant]
     Indication: HYPERTENSION
     Dosage: 2.5 Milligram
     Route: 065
  15. ZOMETA [Concomitant]
     Indication: MULTIPLE MYELOMA
     Dosage: 4 Milligram
     Route: 041
     Dates: start: 200808

REACTIONS (2)
  - Basal cell carcinoma [Unknown]
  - Cellulitis [Recovered/Resolved]
